FAERS Safety Report 11171872 (Version 5)
Quarter: 2015Q3

REPORT INFORMATION
  Report Type: Spontaneous
  Country: JP (occurrence: JP)
  Receive Date: 20150608
  Receipt Date: 20150806
  Transmission Date: 20151125
  Serious: Yes (Other)
  Sender: FDA-Public Use
  Company Number: JP-GLAXOSMITHKLINE-JP2015JPN076552

PATIENT
  Age: 69 Year
  Sex: Female

DRUGS (3)
  1. TASMOLIN [Concomitant]
     Active Substance: BIPERIDEN
     Indication: PARKINSON^S DISEASE
     Dates: start: 2011
  2. MADOPAR [Concomitant]
     Active Substance: BENSERAZIDE HYDROCHLORIDE\LEVODOPA
     Indication: PARKINSON^S DISEASE
     Dates: start: 2006
  3. REQUIP [Suspect]
     Active Substance: ROPINIROLE HYDROCHLORIDE
     Indication: PARKINSON^S DISEASE
     Dosage: 4 MG, QD
     Route: 048
     Dates: start: 2013

REACTIONS (3)
  - Platelet count decreased [Unknown]
  - Haemorrhagic diathesis [Unknown]
  - Haemorrhage subcutaneous [Unknown]
